FAERS Safety Report 9690869 (Version 1)
Quarter: 2013Q4

REPORT INFORMATION
  Report Type: Spontaneous
  Country: JP (occurrence: JP)
  Receive Date: 20131115
  Receipt Date: 20131115
  Transmission Date: 20140711
  Serious: Yes (Death)
  Sender: FDA-Public Use
  Company Number: JP-PFIZER INC-2013325461

PATIENT
  Age: 37 Year
  Sex: Female

DRUGS (7)
  1. TRIAZOLAM [Suspect]
     Route: 048
  2. VEGETAMIN A [Suspect]
     Route: 048
  3. VEGETAMIN-B [Suspect]
     Route: 048
  4. BROTIZOLAM [Suspect]
     Route: 048
  5. NIMETAZEPAM [Suspect]
     Route: 048
  6. FLUNITRAZEPAM [Suspect]
     Route: 048
  7. ETIZOLAM [Suspect]
     Route: 048

REACTIONS (2)
  - Overdose [Fatal]
  - Cardiac arrest [Fatal]
